FAERS Safety Report 7979260-6 (Version None)
Quarter: 2011Q4

REPORT INFORMATION
  Report Type: 
  Country: None (occurrence: None)
  Receive Date: 20111214
  Receipt Date: 20111214
  Transmission Date: 20120403
  Serious: Yes (Life-Threatening)
  Sender: FDA-Public Use
  Company Number: None

PATIENT
  Age: 45 Year
  Sex: Female
  Weight: 61.234 kg

DRUGS (1)
  1. TRAMADOL HCL [Suspect]
     Indication: PAIN IN EXTREMITY
     Dates: start: 20111212, end: 20111212

REACTIONS (4)
  - AGITATION [None]
  - HYPOAESTHESIA [None]
  - PRURITUS [None]
  - MIDDLE INSOMNIA [None]
